FAERS Safety Report 7587694-7 (Version None)
Quarter: 2011Q3

REPORT INFORMATION
  Report Type: 
  Country: None (occurrence: None)
  Receive Date: 20110704
  Receipt Date: 20110627
  Transmission Date: 20111222
  Serious: Yes (Hospitalization)
  Sender: FDA-Public Use
  Company Number: JP-SP-2011-03930

PATIENT
  Age: 66 Year
  Sex: Male

DRUGS (1)
  1. IMMUCYST [Suspect]
     Indication: BLADDER CANCER
     Route: 043

REACTIONS (3)
  - DYSURIA [None]
  - ABDOMINAL PAIN LOWER [None]
  - CONTRACTED BLADDER [None]
